FAERS Safety Report 6657823-8 (Version None)
Quarter: 2010Q1

REPORT INFORMATION
  Report Type: 
  Country: None (occurrence: None)
  Receive Date: 20100330
  Receipt Date: 20100329
  Transmission Date: 20100710
  Serious: Yes (Life-Threatening, Hospitalization)
  Sender: FDA-Public Use
  Company Number: GB-B.I. PHARMACEUTICALS,INC./RIDGEFIELD-2003-BP-10634PF

PATIENT
  Age: 71 Year
  Sex: Male
  Weight: 66 kg

DRUGS (5)
  1. SPIRIVA [Suspect]
     Indication: CHRONIC OBSTRUCTIVE PULMONARY DISEASE
     Dosage: 18 MCG
     Route: 055
     Dates: start: 20031110, end: 20031110
  2. SYMBICORT [Concomitant]
  3. SALBUTAMOL [Concomitant]
     Route: 055
  4. COMBIVENT [Concomitant]
     Dates: end: 20031110
  5. OXYGEN [Concomitant]
     Route: 048

REACTIONS (4)
  - CARDIAC DISORDER [None]
  - DYSPNOEA [None]
  - SINUS TACHYCARDIA [None]
  - WHITE BLOOD CELL COUNT INCREASED [None]
